FAERS Safety Report 5771911-X (Version None)
Quarter: 2008Q2

REPORT INFORMATION
  Report Type: 
  Country: None (occurrence: None)
  Receive Date: 20080601
  Receipt Date: 20080228
  Transmission Date: 20081010
  Serious: No
  Sender: FDA-Public Use
  Company Number: US200802006972

PATIENT
  Age: 62 Year
  Sex: Male
  Weight: 107 kg

DRUGS (6)
  1. BYETTA [Suspect]
     Indication: TYPE 2 DIABETES MELLITUS
     Dosage: 5 UG, 2/D, SUBCUTANEOUS ; 10 UG, 2/D, SUBCUTANEOUS
     Route: 058
     Dates: start: 20060101, end: 20060101
  2. BYETTA [Suspect]
     Indication: TYPE 2 DIABETES MELLITUS
     Dosage: 5 UG, 2/D, SUBCUTANEOUS ; 10 UG, 2/D, SUBCUTANEOUS
     Route: 058
     Dates: start: 20060101
  3. HUMULIN REGULAR (INSULIN HUMAN) [Concomitant]
  4. ACTOS /USA/ (PIOGLITAZONE HYDROCHLORIDE) [Concomitant]
  5. METFORMIN HCL [Concomitant]
  6. ASPIRIN [Concomitant]

REACTIONS (4)
  - BLOOD GLUCOSE INCREASED [None]
  - DECREASED APPETITE [None]
  - INJECTION SITE HAEMORRHAGE [None]
  - WEIGHT DECREASED [None]
